FAERS Safety Report 15952595 (Version 1)
Quarter: 2019Q1

REPORT INFORMATION
  Report Type: Spontaneous
  Country: US (occurrence: US)
  Receive Date: 20190211
  Receipt Date: 20190211
  Transmission Date: 20190417
  Serious: No
  Sender: FDA-Public Use
  Company Number: US-BAXTER-2019BAX002610

PATIENT
  Age: 46 Year
  Sex: Female

DRUGS (1)
  1. 0.9% SODIUM CHLORIDE INJECTION [Suspect]
     Active Substance: SODIUM CHLORIDE
     Indication: FLUID REPLACEMENT
     Dosage: 0.9% SODIUM CHLORIDE INJECTION (INJ), USP VIAFLEX PLASTIC CONTAINER
     Route: 042
     Dates: start: 201812, end: 201812

REACTIONS (3)
  - Migraine [Recovered/Resolved]
  - Infusion site pain [Recovered/Resolved]
  - Vomiting [Recovered/Resolved]

NARRATIVE: CASE EVENT DATE: 201812
